FAERS Safety Report 22899118 (Version 2)
Quarter: 2023Q4

REPORT INFORMATION
  Report Type: Spontaneous
  Country: DE (occurrence: DE)
  Receive Date: 20230904
  Receipt Date: 20231004
  Transmission Date: 20240110
  Serious: Yes (Other)
  Sender: FDA-Public Use
  Company Number: DE-002147023-NVSC2023DE108223

PATIENT
  Sex: Female
  Weight: 60 kg

DRUGS (15)
  1. ESCITALOPRAM [Suspect]
     Active Substance: ESCITALOPRAM OXALATE
     Indication: Depression
     Dosage: 5 MILLIGRAM, ONCE A DAY
     Route: 065
  2. ESCITALOPRAM [Suspect]
     Active Substance: ESCITALOPRAM OXALATE
     Dosage: 1 DOSAGE FORM, ONCE A DAY (V1 DOSAGE FORM (1-0-0-0)
     Route: 065
     Dates: end: 2023
  3. EXELON [Suspect]
     Active Substance: RIVASTIGMINE TARTRATE
     Indication: Dementia Alzheimer^s type
     Dosage: UNK UNK, ONCE A DAY
     Route: 065
     Dates: start: 2013
  4. EXELON [Suspect]
     Active Substance: RIVASTIGMINE TARTRATE
     Dosage: UNK, ONCE A DAY
     Route: 065
     Dates: start: 2020
  5. EXELON [Suspect]
     Active Substance: RIVASTIGMINE TARTRATE
     Dosage: UNK (13.3 MG/24 STUNDEN TRANSDERMALES PFLASTER)
     Route: 065
  6. EXELON [Suspect]
     Active Substance: RIVASTIGMINE TARTRATE
     Dosage: 4.6 MILLIGRAM, ONCE A DAY (4,6 MG/24 STUNDEN TRANSDERMALES PFLASTER)
     Route: 065
     Dates: start: 2022, end: 20220619
  7. EXELON [Suspect]
     Active Substance: RIVASTIGMINE TARTRATE
     Dosage: 13.3 MG, QD (13,3 MG/24 STUNDEN TRANSDERMALES PFLASTER)
     Route: 065
     Dates: end: 2020
  8. LITHIUM [Suspect]
     Active Substance: LITHIUM
     Indication: Dementia Alzheimer^s type
     Dosage: 1 DOSAGE FORM, ONCE A DAY
     Route: 065
     Dates: end: 2019
  9. DEXAMETHASONE\NEOMYCIN SULFATE\POLYMYXIN B SULFATE [Suspect]
     Active Substance: DEXAMETHASONE\NEOMYCIN SULFATE\POLYMYXIN B SULFATE
     Indication: Product used for unknown indication
     Dosage: UNK
     Route: 065
  10. MAGNESIUM [Suspect]
     Active Substance: MAGNESIUM
     Indication: Product used for unknown indication
     Dosage: 150 MILLIGRAM
     Route: 065
  11. NEVANAC [Suspect]
     Active Substance: NEPAFENAC
     Indication: Product used for unknown indication
     Dosage: UNK
     Route: 065
  12. CRENEZUMAB [Concomitant]
     Active Substance: CRENEZUMAB
     Indication: Product used for unknown indication
     Dosage: UNK, ONCE A DAY
     Route: 042
     Dates: start: 20190108, end: 20190108
  13. ETILEFRINE HYDROCHLORIDE [Concomitant]
     Active Substance: ETILEFRINE HYDROCHLORIDE
     Indication: Collateral circulation
     Dosage: UNK
     Route: 065
  14. CAMPHOR (SYNTHETIC)\MENTHOL [Concomitant]
     Active Substance: CAMPHOR (SYNTHETIC)\MENTHOL
     Indication: Collateral circulation
     Dosage: UNK
     Route: 065
  15. ESTRIOL [Concomitant]
     Active Substance: ESTRIOL
     Indication: Product used for unknown indication
     Dosage: UNK
     Route: 065

REACTIONS (24)
  - Dementia Alzheimer^s type [Not Recovered/Not Resolved]
  - Cognitive disorder [Not Recovered/Not Resolved]
  - Memory impairment [Unknown]
  - Epilepsy [Unknown]
  - Renal failure [Unknown]
  - Aphasia [Unknown]
  - Hip fracture [Unknown]
  - Asthenia [Unknown]
  - Cataract [Unknown]
  - Muscle twitching [Recovered/Resolved]
  - Osteopenia [Unknown]
  - Urinary tract infection [Unknown]
  - Migraine [Unknown]
  - Nausea [Unknown]
  - Muscle spasms [Unknown]
  - Vitamin B12 deficiency [Unknown]
  - Fatigue [Unknown]
  - Varicose vein [Unknown]
  - Restlessness [Unknown]
  - Cardiovascular disorder [Unknown]
  - Blood pressure decreased [Unknown]
  - Drug intolerance [Unknown]
  - Wrong technique in product usage process [Unknown]
  - Product administration error [Unknown]

NARRATIVE: CASE EVENT DATE: 20130101
